FAERS Safety Report 5352158-8 (Version None)
Quarter: 2007Q2

REPORT INFORMATION
  Report Type: 
  Country: None (occurrence: None)
  Receive Date: 20070611
  Receipt Date: 20070604
  Transmission Date: 20071010
  Serious: Yes (Death, Other)
  Sender: FDA-Public Use
  Company Number: TR-NOVOPROD-264180

PATIENT
  Age: 67 Year
  Sex: Male

DRUGS (10)
  1. NOVOSEVEN [Suspect]
     Indication: GASTROINTESTINAL HAEMORRHAGE
     Dosage: 120 UG/KG / 2 HRS
     Route: 042
  2. NOVOSEVEN [Suspect]
     Dosage: 120 UG/KG / 2 HRS
     Route: 042
  3. RED BLOOD CELLS [Concomitant]
     Dosage: 17 U, UNK
     Route: 042
  4. PLATELETS, CONCENTRATED [Concomitant]
     Dosage: 14 U, UNK
     Route: 042
  5. FRESH FROZEN PLASMA [Concomitant]
     Dosage: 27 U, UNK
     Route: 042
  6. METHYLPREDNISOLONE 16MG TAB [Concomitant]
     Route: 042
  7. IMMUNE GLOBULIN INTRAVENOUS (HUMAN) [Concomitant]
     Dosage: 1000 MG/KG, FOR 2 DAYS
     Route: 042
  8. TRANEXAMIC [Concomitant]
     Dosage: 1.5 G, QD
  9. SOMATOSTATIN [Concomitant]
     Route: 042
  10. BLOOD CELLS, PACKED HUMAN [Concomitant]
     Dosage: 7 U, UNK

REACTIONS (2)
  - CONDITION AGGRAVATED [None]
  - PNEUMOCOCCAL SEPSIS [None]
